FAERS Safety Report 4373400-6 (Version None)
Quarter: 2004Q2

REPORT INFORMATION
  Report Type: 
  Country: None (occurrence: None)
  Receive Date: 20040603
  Receipt Date: 20040518
  Transmission Date: 20050107
  Serious: Yes (Hospitalization)
  Sender: FDA-Public Use
  Company Number: A03200401062

PATIENT
  Age: 53 Year
  Sex: Female
  Weight: 60.3284 kg

DRUGS (8)
  1. ELOXATIN [Suspect]
     Indication: COLON CANCER METASTATIC
     Dosage: 170 MG Q2W - INTRAVENOUS NOS
     Route: 042
     Dates: start: 20040201, end: 20040201
  2. FLUOROURACIL [Concomitant]
  3. LEUCOVORIN [Concomitant]
  4. OXYCODONE HCL [Concomitant]
  5. OXYCODONE [Concomitant]
  6. PROCHLORPERAZINE EDISYLATE [Concomitant]
  7. METOCLOPRAMIDE [Concomitant]
  8. LORAZEPAM [Concomitant]

REACTIONS (9)
  - DEHYDRATION [None]
  - DIFFICULTY IN WALKING [None]
  - DRUG TOLERANCE DECREASED [None]
  - FEBRILE NEUTROPENIA [None]
  - ILEUS [None]
  - LARYNGOSPASM [None]
  - MUSCLE CRAMP [None]
  - MUSCLE SPASMS [None]
  - SMALL INTESTINAL OBSTRUCTION [None]
